FAERS Safety Report 20532186 (Version 1)
Quarter: 2022Q1

REPORT INFORMATION
  Report Type: Spontaneous
  Country: US (occurrence: US)
  Receive Date: 20220301
  Receipt Date: 20220301
  Transmission Date: 20220423
  Serious: No
  Sender: FDA-Public Use
  Company Number: US-PFIZER INC-202101334311

PATIENT
  Age: 65 Year
  Sex: Female

DRUGS (1)
  1. IBRANCE [Suspect]
     Active Substance: PALBOCICLIB
     Indication: B-cell lymphoma
     Dosage: 125 MG
     Dates: start: 20210727

REACTIONS (2)
  - Off label use [Unknown]
  - White blood cell count decreased [Unknown]
